FAERS Safety Report 5178928-7 (Version None)
Quarter: 2006Q4

REPORT INFORMATION
  Report Type: 
  Country: None (occurrence: None)
  Receive Date: 20061213
  Receipt Date: 20061213
  Transmission Date: 20070319
  Serious: Yes (Hospitalization)
  Sender: FDA-Public Use
  Company Number: None

PATIENT
  Age: 66 Year
  Sex: Male
  Weight: 82.4 kg

DRUGS (1)
  1. TYLENOL [Suspect]
     Dosage: ONCE PO
     Route: 048

REACTIONS (6)
  - BODY TEMPERATURE DECREASED [None]
  - CENTRAL OBESITY [None]
  - CONVULSION [None]
  - INTENTIONAL OVERDOSE [None]
  - SUICIDE ATTEMPT [None]
  - URINARY TRACT INFECTION [None]
